FAERS Safety Report 9788462 (Version 1)
Quarter: 2013Q4

REPORT INFORMATION
  Report Type: Spontaneous
  Country: BR (occurrence: BR)
  Receive Date: 20131230
  Receipt Date: 20131230
  Transmission Date: 20140711
  Serious: Yes (Other)
  Sender: FDA-Public Use
  Company Number: BR-PFIZER INC-2013368532

PATIENT
  Age: 42 Year
  Sex: Female

DRUGS (6)
  1. CELEBRA [Suspect]
     Indication: SPINAL PAIN
     Dosage: 1 CAPSULE OF STRENGTH 200 MG, 2X/DAY
     Dates: start: 201206
  2. CELEBRA [Suspect]
     Indication: RHEUMATIC DISORDER
  3. CYMBALTA [Concomitant]
     Indication: ANTIINFLAMMATORY THERAPY
     Dosage: UNK
     Dates: start: 201310
  4. NEOCIL [Concomitant]
     Indication: ANTIINFLAMMATORY THERAPY
     Dosage: UNK
     Dates: start: 201302
  5. OMEPRAZOLE [Concomitant]
     Indication: ABDOMINAL PAIN UPPER
     Dosage: UNK
     Dates: start: 201302
  6. VITAMIN D [Concomitant]
     Indication: BONE DISORDER

REACTIONS (2)
  - Systemic lupus erythematosus [Unknown]
  - Drug ineffective [Unknown]
